FAERS Safety Report 9871043 (Version 3)
Quarter: 2020Q3

REPORT INFORMATION
  Report Type: Report from Study
  Country: TR (occurrence: TR)
  Receive Date: 20140205
  Receipt Date: 20140607
  Transmission Date: 20201105
  Serious: Yes (Hospitalization)
  Sender: FDA-Public Use
  Company Number: PHHY2014TR012864

PATIENT
  Age: 73 Year
  Sex: Male

DRUGS (13)
  1. FOLINIC ACID [Suspect]
     Active Substance: LEUCOVORIN
     Indication: GASTROOESOPHAGEAL CANCER
     Dates: start: 20130716
  2. NORVASC [Concomitant]
     Active Substance: AMLODIPINE BESYLATE
     Indication: DEEP VEIN THROMBOSIS
     Dosage: 10 MG, UNK
     Dates: start: 20030701
  3. 5?FLUOROURACIL [Suspect]
     Active Substance: FLUOROURACIL
     Dates: start: 20130716
  4. OXALIPLATIN. [Suspect]
     Active Substance: OXALIPLATIN
     Dosage: 170 MG, UNK
     Dates: start: 20131028
  5. CLEXANE [Concomitant]
     Active Substance: ENOXAPARIN SODIUM
     Indication: DEEP VEIN THROMBOSIS
     Dosage: 0.6 ML, UNK
     Route: 042
     Dates: start: 20130813
  6. OXALIPLATIN. [Suspect]
     Active Substance: OXALIPLATIN
     Dates: start: 20130716
  7. OXALIPLATIN. [Suspect]
     Active Substance: OXALIPLATIN
     Dosage: 135 MG, UNK
     Dates: start: 20131211
  8. 5?FLUOROURACIL [Suspect]
     Active Substance: FLUOROURACIL
     Indication: GASTROOESOPHAGEAL CANCER
     Dates: start: 20130716
  9. 5?FLUOROURACIL [Suspect]
     Active Substance: FLUOROURACIL
     Dosage: 800 MG, UNK
     Route: 040
     Dates: start: 20131028, end: 20131211
  10. ALDACTONE [Concomitant]
     Active Substance: SPIRONOLACTONE
     Indication: OEDEMA
     Dosage: 25 MG, UNK
     Route: 048
     Dates: start: 20131023
  11. 5?FLUOROURACIL [Suspect]
     Active Substance: FLUOROURACIL
     Dosage: 4800 MG, UNK
     Route: 041
     Dates: start: 20131028, end: 20131111
  12. ONARTUZUMAB. [Suspect]
     Active Substance: ONARTUZUMAB
     Route: 042
     Dates: start: 20130716
  13. CO?DIOVANE [Concomitant]
     Indication: HYPERTENSION
     Dosage: 16 MG, UNK
     Route: 048
     Dates: start: 20030701

REACTIONS (2)
  - Peripheral sensory neuropathy [Recovering/Resolving]
  - Generalised oedema [Recovered/Resolved]

NARRATIVE: CASE EVENT DATE: 20131111
